FAERS Safety Report 15985298 (Version 1)
Quarter: 2019Q1

REPORT INFORMATION
  Report Type: Report from Study
  Country: US (occurrence: US)
  Receive Date: 20190220
  Receipt Date: 20190220
  Transmission Date: 20190418
  Serious: Yes (Hospitalization, Other)
  Sender: FDA-Public Use
  Company Number: US-BAYER-2019-013752

PATIENT
  Age: 82 Year
  Sex: Female
  Weight: 56.24 kg

DRUGS (4)
  1. ADEMPAS [Suspect]
     Active Substance: RIOCIGUAT
     Indication: PULMONARY ARTERIAL HYPERTENSION
     Dosage: UNK
     Dates: start: 20181113
  2. ELIQUIS [Concomitant]
     Active Substance: APIXABAN
     Dosage: UNK
  3. ADEMPAS [Suspect]
     Active Substance: RIOCIGUAT
     Indication: PULMONARY ARTERIAL HYPERTENSION
     Dosage: 2.5 MG, TID
     Route: 048
  4. ADEMPAS [Suspect]
     Active Substance: RIOCIGUAT
     Indication: PULMONARY ARTERIAL HYPERTENSION
     Dosage: 2 UNK
     Route: 048

REACTIONS (9)
  - Decreased appetite [Unknown]
  - Dizziness [Unknown]
  - Abnormal loss of weight [Unknown]
  - Oxygen saturation decreased [None]
  - Oedema peripheral [None]
  - Loss of consciousness [None]
  - Hypotension [Unknown]
  - Blood pressure systolic decreased [None]
  - Asthenia [Unknown]

NARRATIVE: CASE EVENT DATE: 201901
